FAERS Safety Report 6921869-2 (Version None)
Quarter: 2010Q3

REPORT INFORMATION
  Report Type: 
  Country: None (occurrence: None)
  Receive Date: 20100806
  Receipt Date: 20100527
  Transmission Date: 20110219
  Serious: No
  Sender: FDA-Public Use
  Company Number: 2010-07254

PATIENT
  Age: 76 Year
  Sex: Male

DRUGS (1)
  1. RAPAFLO [Suspect]
     Indication: BENIGN PROSTATIC HYPERPLASIA
     Dosage: 1 CAPSULE, DAILY, ORAL
     Route: 048
     Dates: start: 20100501

REACTIONS (3)
  - DIZZINESS [None]
  - NASAL CONGESTION [None]
  - ORTHOSTATIC HYPOTENSION [None]
